FAERS Safety Report 11917675 (Version 1)
Quarter: 2016Q1

REPORT INFORMATION
  Report Type: Report from Study
  Country: NL (occurrence: NL)
  Receive Date: 20160114
  Receipt Date: 20160114
  Transmission Date: 20160526
  Serious: Yes (Hospitalization)
  Sender: FDA-Public Use
  Company Number: NL-ROCHE-1689514

PATIENT
  Age: 48 Year
  Sex: Female

DRUGS (8)
  1. CARBOPLATIN. [Suspect]
     Active Substance: CARBOPLATIN
     Indication: BREAST CANCER
     Dosage: DATE OF MOST RECENT DOSE ON 28/DEC/2015
     Route: 042
     Dates: start: 20151109
  2. FLUOROURACIL. [Suspect]
     Active Substance: FLUOROURACIL
     Indication: BREAST CANCER
     Dosage: DATE OF MOST RECENT DOSE RECEIVED ON 19/OCT/2015
     Route: 042
     Dates: start: 20150902
  3. PERTUZUMAB [Suspect]
     Active Substance: PERTUZUMAB
     Indication: BREAST CANCER
     Dosage: DATE OF MOST RECENT DOSE RECEIVED ON 28/DEC/2015
     Route: 042
     Dates: start: 20150902
  4. PACLITAXEL. [Suspect]
     Active Substance: PACLITAXEL
     Indication: BREAST CANCER
     Dosage: DATE OF MOST RECENT DOSE ON 20/DEC/2015
     Route: 042
     Dates: start: 20151109
  5. TRASTUZUMAB [Suspect]
     Active Substance: TRASTUZUMAB
     Indication: BREAST CANCER
     Dosage: DATE OF MOST RECENT DOSE RECEIVED ON 28/DEC/2015
     Route: 042
     Dates: start: 20150902
  6. TRASTUZUMAB [Suspect]
     Active Substance: TRASTUZUMAB
     Dosage: DAY 8 TO DAY 15
     Route: 042
  7. EPIRUBICIN [Suspect]
     Active Substance: EPIRUBICIN
     Indication: BREAST CANCER
     Dosage: DATE OF MOST RECENT DOSE RECEIVED ON 19/OCT/2015
     Route: 042
     Dates: start: 20150902
  8. CYCLOPHOSPHAMIDE. [Suspect]
     Active Substance: CYCLOPHOSPHAMIDE
     Indication: BREAST CANCER
     Dosage: DATE OF MOST RECENT DOSE RECEIVED ON 19/OCT/2015
     Route: 042
     Dates: start: 20150902

REACTIONS (3)
  - Viral upper respiratory tract infection [Recovering/Resolving]
  - Hypokalaemia [Recovered/Resolved]
  - Hypophosphataemia [Recovering/Resolving]

NARRATIVE: CASE EVENT DATE: 20160102
